FAERS Safety Report 5040126-5 (Version None)
Quarter: 2006Q2

REPORT INFORMATION
  Report Type: 
  Country: None (occurrence: None)
  Receive Date: 20060601
  Receipt Date: 20060119
  Transmission Date: 20061013
  Serious: No
  Sender: FDA-Public Use
  Company Number: 2006PV007312

PATIENT
  Age: 62 Year
  Sex: Male
  Weight: 113.3993 kg

DRUGS (4)
  1. BYETTA [Suspect]
     Indication: DIABETES MELLITUS NON-INSULIN-DEPENDENT
     Dosage: SEE IMAGE
     Route: 058
     Dates: start: 20060102, end: 20060115
  2. BYETTA [Suspect]
     Indication: DIABETES MELLITUS NON-INSULIN-DEPENDENT
     Dosage: SEE IMAGE
     Route: 058
     Dates: start: 20060116
  3. AMARYL [Concomitant]
  4. LANTUS [Concomitant]

REACTIONS (11)
  - CHILLS [None]
  - DIZZINESS [None]
  - FEELING HOT [None]
  - FEELING JITTERY [None]
  - HYPERHIDROSIS [None]
  - HYPOGLYCAEMIA [None]
  - MEDICATION ERROR [None]
  - NAUSEA [None]
  - PHOTOPSIA [None]
  - TREMOR [None]
  - VISUAL DISTURBANCE [None]
